FAERS Safety Report 23956681 (Version 1)
Quarter: 2024Q2

REPORT INFORMATION
  Report Type: Spontaneous
  Country: US (occurrence: US)
  Receive Date: 20240610
  Receipt Date: 20240610
  Transmission Date: 20240715
  Serious: No
  Sender: FDA-Public Use
  Company Number: US-STI Pharma LLC-2157949

PATIENT
  Age: 75 Year
  Sex: Male

DRUGS (5)
  1. ETHAMBUTOL HYDROCHLORIDE [Suspect]
     Active Substance: ETHAMBUTOL HYDROCHLORIDE
     Dates: start: 202301, end: 202305
  2. LINEZOLID [Concomitant]
     Active Substance: LINEZOLID
     Dates: start: 202301
  3. AZITHROMYCIN [Concomitant]
     Active Substance: AZITHROMYCIN
     Dates: start: 202306
  4. AMIKACIN [Concomitant]
     Active Substance: AMIKACIN
     Dates: start: 202306
  5. MOXIFLOXACIN [Concomitant]
     Active Substance: MOXIFLOXACIN
     Dates: start: 202301

REACTIONS (2)
  - Visual impairment [Unknown]
  - Sputum culture positive [Unknown]
